FAERS Safety Report 5030400-0 (Version None)
Quarter: 2006Q2

REPORT INFORMATION
  Report Type: 
  Country: None (occurrence: None)
  Receive Date: 20060614
  Receipt Date: 20060613
  Transmission Date: 20061013
  Serious: Yes (Hospitalization, Other)
  Sender: FDA-Public Use
  Company Number: FRWYE245807AUG03

PATIENT
  Age: 55 Year
  Sex: Female

DRUGS (9)
  1. CYCLOSPORINE [Suspect]
     Indication: PROPHYLAXIS AGAINST TRANSPLANT REJECTION
     Dosage: SEE IMAGE
     Route: 048
     Dates: start: 20030605, end: 20030607
  2. CYCLOSPORINE [Suspect]
     Indication: PROPHYLAXIS AGAINST TRANSPLANT REJECTION
     Dosage: SEE IMAGE
     Route: 048
     Dates: start: 20030608
  3. CELLCEPT [Suspect]
     Indication: PROPHYLAXIS AGAINST TRANSPLANT REJECTION
     Dosage: SEE IMAGE
     Route: 048
     Dates: start: 20030605, end: 20030702
  4. CELLCEPT [Suspect]
     Indication: PROPHYLAXIS AGAINST TRANSPLANT REJECTION
     Dosage: SEE IMAGE
     Route: 048
     Dates: start: 20030801
  5. HEPARIN [Suspect]
     Indication: ANGINA UNSTABLE
     Dates: start: 20030610, end: 20030601
  6. ASPIRIN [Suspect]
     Indication: ANGINA UNSTABLE
     Route: 048
     Dates: start: 20030610, end: 20030601
  7. ANTITHYMOCYTE IMMUNOGLOBULIN [Concomitant]
  8. SOLU-MEDROL [Concomitant]
  9. CORTAN [Concomitant]

REACTIONS (13)
  - ABDOMINAL WALL ABSCESS [None]
  - BACILLUS INFECTION [None]
  - CANDIDIASIS [None]
  - EFFUSION [None]
  - ENTEROBACTER INFECTION [None]
  - ENTEROCOCCAL INFECTION [None]
  - ESCHERICHIA INFECTION [None]
  - HAEMATOMA [None]
  - IMPAIRED HEALING [None]
  - PURULENT DISCHARGE [None]
  - SKIN INFECTION [None]
  - STAPHYLOCOCCAL INFECTION [None]
  - STREPTOCOCCAL INFECTION [None]
